FAERS Safety Report 16034667 (Version 1)
Quarter: 2019Q1

REPORT INFORMATION
  Report Type: Spontaneous
  Country: US (occurrence: US)
  Receive Date: 20190304
  Receipt Date: 20190304
  Transmission Date: 20190418
  Serious: Yes (Death)
  Sender: FDA-Public Use
  Company Number: None

PATIENT
  Age: 26 Year
  Sex: Male

DRUGS (4)
  1. KRATOM [Suspect]
     Active Substance: HERBALS\MITRAGYNINE
  2. ACETYL FENTANYL [Concomitant]
     Active Substance: ACETYLFENTANYL
  3. FENTANYL. [Suspect]
     Active Substance: FENTANYL
  4. XYLAZINE [Concomitant]
     Active Substance: XYLAZINE

REACTIONS (2)
  - Accidental death [None]
  - Toxicity to various agents [None]

NARRATIVE: CASE EVENT DATE: 20190101
